FAERS Safety Report 16080115 (Version 4)
Quarter: 2019Q2

REPORT INFORMATION
  Report Type: Spontaneous
  Country: JP (occurrence: JP)
  Receive Date: 20190315
  Receipt Date: 20190416
  Transmission Date: 20190711
  Serious: Yes (Hospitalization, Other)
  Sender: FDA-Public Use
  Company Number: PHJP2019JP003251

PATIENT
  Age: 8 Year
  Sex: Female

DRUGS (1)
  1. REVOLADE TAB [Suspect]
     Active Substance: ELTROMBOPAG
     Indication: PANCYTOPENIA
     Dosage: UNK
     Route: 048
     Dates: start: 20161205, end: 201703

REACTIONS (6)
  - Fasciitis [Unknown]
  - Joint contracture [Unknown]
  - Graft versus host disease [Recovering/Resolving]
  - Morphoea [Unknown]
  - Hepatic enzyme increased [Recovered/Resolved]
  - Blood immunoglobulin G increased [Unknown]

NARRATIVE: CASE EVENT DATE: 201702
